FAERS Safety Report 10570089 (Version 1)
Quarter: 2014Q4

REPORT INFORMATION
  Report Type: Spontaneous
  Country: US (occurrence: None)
  Receive Date: 20141105
  Receipt Date: 20141105
  Transmission Date: 20150529
  Serious: Yes (Death, Hospitalization)
  Sender: FDA-Public Use
  Company Number: US2014K4122LIT

PATIENT
  Age: 7 Month
  Sex: Male

DRUGS (4)
  1. METRONIDAZOLE. [Suspect]
     Active Substance: METRONIDAZOLE
  2. CF VITAMINS [Concomitant]
  3. LANSOPRAZOLE. [Suspect]
     Active Substance: LANSOPRAZOLE
     Indication: GASTROOESOPHAGEAL REFLUX DISEASE
  4. PANCREATIC ENZYME REPLACEMENT THERAPY [Concomitant]

REACTIONS (10)
  - Abdominal distension [None]
  - Haemophilus test positive [None]
  - Cardiopulmonary failure [None]
  - Haemophilus infection [None]
  - Haemodynamic instability [None]
  - Diarrhoea [None]
  - Vomiting [None]
  - Pyrexia [None]
  - Retroperitoneal haemorrhage [None]
  - Clostridium test positive [None]

NARRATIVE: CASE EVENT DATE: 20130508
